FAERS Safety Report 16698776 (Version 1)
Quarter: 2019Q3

REPORT INFORMATION
  Report Type: Spontaneous
  Country: IN (occurrence: IN)
  Receive Date: 20190813
  Receipt Date: 20190813
  Transmission Date: 20191004
  Serious: Yes (Hospitalization, Other)
  Sender: FDA-Public Use
  Company Number: IN-MYLANLABS-2019M1076038

PATIENT
  Age: 41 Year
  Sex: Male

DRUGS (4)
  1. MIDAZOLAM [Suspect]
     Active Substance: MIDAZOLAM HYDROCHLORIDE
     Dosage: INCREASED TO 50MG FOUR TO FIVE TIMES PER DAY
     Route: 030
  2. BUTORPHANOL [Suspect]
     Active Substance: BUTORPHANOL
     Indication: PRODUCT USED FOR UNKNOWN INDICATION
     Dosage: FREQUENCY: ONCE AND THEN INCREASED TO 8-10MG FOUR TO FIVE TIMES PER DAY
     Route: 030
  3. MIDAZOLAM [Suspect]
     Active Substance: MIDAZOLAM HYDROCHLORIDE
     Indication: PRODUCT USED FOR UNKNOWN INDICATION
     Dosage: FREQUENCY: ONCE
     Route: 030
  4. BUTORPHANOL [Suspect]
     Active Substance: BUTORPHANOL
     Dosage: 8-10MG FOUR TO FIVE TIMES PER DAY
     Route: 030

REACTIONS (3)
  - Drug abuse [Recovering/Resolving]
  - Injection site scar [Recovering/Resolving]
  - Drug dependence [Recovering/Resolving]
